FAERS Safety Report 8604633-8 (Version None)
Quarter: 2012Q3

REPORT INFORMATION
  Report Type: 
  Country: None (occurrence: None)
  Receive Date: 20120820
  Receipt Date: 20120815
  Transmission Date: 20120928
  Serious: Yes (Life-Threatening, Hospitalization, Other)
  Sender: FDA-Public Use
  Company Number: PHHY2010AU77040

PATIENT
  Sex: Female

DRUGS (26)
  1. DIGOXIN [Concomitant]
     Indication: ATRIAL FIBRILLATION
     Dosage: 15 UG
  2. LANTUS [Concomitant]
     Dosage: 74 IU, DAILY
  3. BETA BLOCKING AGENTS [Concomitant]
  4. LORAZEPAM [Concomitant]
     Indication: AGITATION
     Dosage: 1-2 MG
     Dates: start: 20080101, end: 20120101
  5. CLOZARIL [Suspect]
     Indication: SCHIZOPHRENIA
     Dosage: 400 MG
     Dates: start: 19940805, end: 20101109
  6. CLOZARIL [Suspect]
     Dosage: 100 MG, BID
     Dates: start: 20120101
  7. METFORMIN HCL [Concomitant]
     Dosage: 1 G, BID
  8. INSULIN [Concomitant]
  9. ROSUVASTATIN [Concomitant]
     Dosage: 40 MG, UNK
  10. ARIPIPRAZOLE [Concomitant]
     Dosage: 30 MG, UNK
  11. CLOZARIL [Suspect]
     Dosage: 150 MG
     Dates: start: 20110320
  12. RAMIPRIL [Concomitant]
     Dosage: 2.5 MG, UNK
  13. COLOXYL WITH SENNA [Concomitant]
     Dosage: 1 DF, BID
  14. DULOXETIME HYDROCHLORIDE [Concomitant]
     Dosage: 60 MG
  15. BISOPROLOL FUMARATE [Concomitant]
     Indication: HYPERTENSION
     Dosage: 5 MG
     Route: 048
     Dates: start: 20000101, end: 20120101
  16. FUROSEMIDE [Concomitant]
     Dosage: 40 MG, UNK
  17. PANTOPRAZOLE [Concomitant]
     Dosage: 40 MG, UNK
  18. CLOZARIL [Suspect]
     Dosage: 500 MG
     Route: 048
     Dates: start: 20101101, end: 20110320
  19. DIGOXIN [Concomitant]
     Dosage: 125 UG, UNK
  20. CHLORPROMAZINE HCL [Concomitant]
     Dosage: 100 MG, TID
  21. VITAMIN D [Concomitant]
     Dosage: 75 UG
  22. ASPIRIN [Concomitant]
     Dosage: 100 MG, UNK
  23. OLANZAPINE [Concomitant]
  24. RISPERIDONE [Concomitant]
     Indication: SCHIZOPHRENIA
     Dosage: 3 MG, QD
     Dates: start: 20080101, end: 20120101
  25. CLOZARIL [Suspect]
     Dosage: 175 MG
     Dates: end: 20110210
  26. CLOPIDOGREL [Concomitant]
     Dosage: 75 MG, UNK

REACTIONS (14)
  - CATATONIA [None]
  - SYNCOPE [None]
  - PSYCHOTIC DISORDER [None]
  - URINARY TRACT INFECTION [None]
  - LEFT VENTRICULAR DYSFUNCTION [None]
  - MYOCARDIAL INFARCTION [None]
  - SEPSIS [None]
  - DELIRIUM [None]
  - LEFT VENTRICULAR HYPERTROPHY [None]
  - ELECTROCARDIOGRAM QT PROLONGED [None]
  - CONFUSIONAL STATE [None]
  - DIZZINESS [None]
  - HYPERGLYCAEMIA [None]
  - ELECTROCARDIOGRAM ST SEGMENT ELEVATION [None]
